FAERS Safety Report 21046713 (Version 1)
Quarter: 2022Q3

REPORT INFORMATION
  Report Type: Spontaneous
  Country: CA (occurrence: CA)
  Receive Date: 20220706
  Receipt Date: 20220706
  Transmission Date: 20221027
  Serious: Yes (Other)
  Sender: FDA-Public Use
  Company Number: CA-MYLANLABS-2022M1048971

PATIENT
  Age: 51 Year
  Sex: Female
  Weight: 58.9 kg

DRUGS (2)
  1. SYNTHROID [Suspect]
     Active Substance: LEVOTHYROXINE SODIUM
     Indication: Hypothyroidism
     Dosage: 56 MICROGRAM, AM (HALF TABLET ONCE A DAY EVERY 4 AM)
     Route: 048
  2. RABEPRAZOLE [Concomitant]
     Active Substance: RABEPRAZOLE
     Indication: Gastrooesophageal reflux disease
     Dosage: UNK UNK, HS (ONCE A DAY EVERY 9 PM)
     Route: 065

REACTIONS (1)
  - Thyrotoxic crisis [Unknown]
